FAERS Safety Report 12219380 (Version 1)
Quarter: 2016Q1

REPORT INFORMATION
  Report Type: Spontaneous
  Country: GB (occurrence: GB)
  Receive Date: 20160329
  Receipt Date: 20160329
  Transmission Date: 20160526
  Serious: Yes (Hospitalization)
  Sender: FDA-Public Use
  Company Number: GB-MALLINCKRODT-T201600995

PATIENT
  Age: 75 Year
  Sex: Female

DRUGS (4)
  1. LEVOBUPIVACAINE [Concomitant]
     Active Substance: LEVOBUPIVACAINE
     Indication: LOCAL ANAESTHESIA
     Dosage: 1.5 ML, SINGLE
     Route: 058
     Dates: start: 20160315, end: 20160315
  2. OPTIRAY 300 [Suspect]
     Active Substance: IOVERSOL
     Indication: FISTULOGRAM
     Dosage: 35 ML, SINGLE
     Route: 013
     Dates: start: 20160315, end: 20160315
  3. LIDOCAINE. [Concomitant]
     Active Substance: LIDOCAINE
     Indication: LOCAL ANAESTHESIA
     Dosage: 1.5 ML, SINGLE
     Route: 058
     Dates: start: 20160315, end: 20160315
  4. HEPARIN [Concomitant]
     Active Substance: HEPARIN SODIUM
     Indication: FISTULOGRAM
     Dosage: 3000 DF, SINGLE
     Route: 013
     Dates: start: 20160315, end: 20160315

REACTIONS (3)
  - Pruritus [Recovered/Resolved]
  - Erythema [Recovered/Resolved]
  - Blister [Recovered/Resolved]

NARRATIVE: CASE EVENT DATE: 20160315
